FAERS Safety Report 20360885 (Version 9)
Quarter: 2022Q3

REPORT INFORMATION
  Report Type: Spontaneous
  Country: CA (occurrence: CA)
  Receive Date: 20220121
  Receipt Date: 20220913
  Transmission Date: 20221026
  Serious: Yes (Other)
  Sender: FDA-Public Use
  Company Number: CA-CELLTRION INC.-2020CA023857

PATIENT

DRUGS (27)
  1. INFLECTRA [Suspect]
     Active Substance: INFLIXIMAB-DYYB
     Indication: Crohn^s disease
     Dosage: 800 MG, EVERY 6 WEEKS
     Route: 042
  2. INFLECTRA [Suspect]
     Active Substance: INFLIXIMAB-DYYB
     Dosage: 800 MG, EVERY 6 WEEKS
     Route: 042
     Dates: start: 20200709
  3. INFLECTRA [Suspect]
     Active Substance: INFLIXIMAB-DYYB
     Dosage: 800 MG (ASAP AND THEN EVERY 4 WEEKS)
     Route: 042
     Dates: start: 20200813
  4. INFLECTRA [Suspect]
     Active Substance: INFLIXIMAB-DYYB
     Dosage: 800MG EVERY 4WEEKS
     Route: 042
     Dates: start: 20200813, end: 20210714
  5. INFLECTRA [Suspect]
     Active Substance: INFLIXIMAB-DYYB
     Dosage: 800 MG (ASAP AND THEN EVERY 4 WEEKS)
     Route: 042
     Dates: start: 20200911
  6. INFLECTRA [Suspect]
     Active Substance: INFLIXIMAB-DYYB
     Dosage: 800 MG (ASAP AND THEN EVERY 4 WEEKS)
     Route: 042
     Dates: start: 20210120
  7. INFLECTRA [Suspect]
     Active Substance: INFLIXIMAB-DYYB
     Dosage: 800 MG (ASAP AND THEN EVERY 4 WEEKS)
     Route: 042
     Dates: start: 20210308
  8. INFLECTRA [Suspect]
     Active Substance: INFLIXIMAB-DYYB
     Dosage: 800 MG (ASAP AND THEN EVERY 4 WEEKS)
     Route: 042
     Dates: start: 20210422
  9. INFLECTRA [Suspect]
     Active Substance: INFLIXIMAB-DYYB
     Dosage: 800 MG (ASAP AND THEN EVERY 4 WEEKS)
     Route: 042
     Dates: start: 20210603
  10. INFLECTRA [Suspect]
     Active Substance: INFLIXIMAB-DYYB
     Dosage: 800 MG (ASAP AND THEN EVERY 4 WEEKS)
     Route: 042
     Dates: start: 20210603
  11. INFLECTRA [Suspect]
     Active Substance: INFLIXIMAB-DYYB
     Dosage: 800 MG (ASAP AND THEN EVERY 4 WEEKS)
     Route: 042
     Dates: start: 20210714
  12. INFLECTRA [Suspect]
     Active Substance: INFLIXIMAB-DYYB
     Dosage: 800 MG (ASAP AND THEN EVERY 4 WEEKS)
     Route: 042
     Dates: start: 20210714
  13. INFLECTRA [Suspect]
     Active Substance: INFLIXIMAB-DYYB
     Dosage: 800 MG (ASAP AND THEN EVERY 4 WEEKS)
     Route: 042
     Dates: start: 20210714
  14. INFLECTRA [Suspect]
     Active Substance: INFLIXIMAB-DYYB
     Dosage: 800 MG (ASAP AND THEN EVERY 4 WEEKS)
     Route: 042
     Dates: start: 20210714
  15. INFLECTRA [Suspect]
     Active Substance: INFLIXIMAB-DYYB
     Dosage: 800 MG, RELOAD AT 0, 2, 6 THEN EVERY 4 WEEKS
     Route: 042
     Dates: start: 20210825, end: 20211104
  16. INFLECTRA [Suspect]
     Active Substance: INFLIXIMAB-DYYB
     Dosage: 800 MG, RELOAD AT 0, 2, 6 THEN EVERY 4 WEEKS
     Route: 042
     Dates: start: 20211201, end: 20220628
  17. INFLECTRA [Suspect]
     Active Substance: INFLIXIMAB-DYYB
     Dosage: 800 MG, RELOAD AT 0, 2, 6 THEN EVERY 4 WEEKS
     Route: 042
     Dates: start: 20211216
  18. INFLECTRA [Suspect]
     Active Substance: INFLIXIMAB-DYYB
     Dosage: 800 MG, RELOAD AT 0, 2, 6 THEN EVERY 4 WEEKS
     Route: 042
     Dates: start: 20220112
  19. INFLECTRA [Suspect]
     Active Substance: INFLIXIMAB-DYYB
     Dosage: 800 MG, RELOAD AT 0, 2, 6 THEN EVERY 4 WEEKS
     Route: 042
     Dates: start: 20220209
  20. INFLECTRA [Suspect]
     Active Substance: INFLIXIMAB-DYYB
     Dosage: 800 MG, RELOAD AT 0, 2, 6 WEEK THEN EVERY 4 WEEKS
     Route: 042
     Dates: start: 20220308
  21. INFLECTRA [Suspect]
     Active Substance: INFLIXIMAB-DYYB
     Dosage: 800 MG, RELOAD AT 0, 2, 6 WEEK THEN EVERY 4 WEEKS
     Route: 042
     Dates: start: 20220405
  22. INFLECTRA [Suspect]
     Active Substance: INFLIXIMAB-DYYB
     Dosage: 800 MG, RELOAD AT 0, 2, 6 THEN EVERY 4 WEEKS
     Route: 042
     Dates: start: 20220405
  23. INFLECTRA [Suspect]
     Active Substance: INFLIXIMAB-DYYB
     Dosage: 800 MG, RELOAD AT 0, 2, 6 THEN EVERY 4 WEEKS
     Route: 042
     Dates: start: 20220503
  24. INFLECTRA [Suspect]
     Active Substance: INFLIXIMAB-DYYB
     Dosage: 800 MG, RELOAD AT 0, 2, 6 THEN EVERY 4 WEEKS
     Route: 042
     Dates: start: 20220531
  25. INFLECTRA [Suspect]
     Active Substance: INFLIXIMAB-DYYB
     Dosage: 800 MG, RELOAD AT 0, 2, 6 THEN EVERY 4 WEEKS
     Route: 042
     Dates: start: 20220628
  26. PANTOPRAZOLE SODIUM [Concomitant]
     Active Substance: PANTOPRAZOLE SODIUM
     Dosage: UNK
  27. PREDNISONE [Concomitant]
     Active Substance: PREDNISONE
     Dosage: UNK

REACTIONS (17)
  - Pruritus [Recovered/Resolved]
  - Blood pressure increased [Unknown]
  - Drug level decreased [Unknown]
  - Off label use [Unknown]
  - Off label use [Unknown]
  - Off label use [Unknown]
  - Intentional product use issue [Unknown]
  - Inappropriate schedule of product administration [Unknown]
  - Liver function test increased [Unknown]
  - Weight decreased [Unknown]
  - Arthralgia [Unknown]
  - Exposure to SARS-CoV-2 [Unknown]
  - Dyspnoea [Recovered/Resolved]
  - Chest discomfort [Recovered/Resolved]
  - Pruritus [Recovered/Resolved]
  - Peripheral swelling [Unknown]
  - Infusion related reaction [Unknown]

NARRATIVE: CASE EVENT DATE: 20200709
